FAERS Safety Report 18714958 (Version 2)
Quarter: 2021Q1

REPORT INFORMATION
  Report Type: Spontaneous
  Country: US (occurrence: US)
  Receive Date: 20210108
  Receipt Date: 20210219
  Transmission Date: 20210419
  Serious: Yes (Death, Other)
  Sender: FDA-Public Use
  Company Number: US-CELLTRION INC.-2021US000129

PATIENT

DRUGS (1)
  1. INFLECTRA [Suspect]
     Active Substance: INFLIXIMAB-DYYB
     Indication: ARTHRITIS
     Dosage: 5 MG, 3X/DAY(5MG RECEIVED INTRAVENOUS EVERY 8 WEEKS)
     Route: 042
     Dates: start: 202004, end: 20201202

REACTIONS (2)
  - Off label use [Unknown]
  - COVID-19 [Fatal]
